FAERS Safety Report 9857419 (Version 2)
Quarter: 2014Q1

REPORT INFORMATION
  Report Type: Spontaneous
  Country: JP (occurrence: JP)
  Receive Date: 20140131
  Receipt Date: 20140214
  Transmission Date: 20141002
  Serious: Yes (Death)
  Sender: FDA-Public Use
  Company Number: JP-AMGEN-JPNSP2014006067

PATIENT
  Age: 94 Year
  Sex: Male

DRUGS (3)
  1. ARANESP [Suspect]
     Indication: NEPHROGENIC ANAEMIA
     Dosage: 120 MUG, UNK
     Route: 058
     Dates: start: 20130327, end: 20131012
  2. LASIX                              /00032601/ [Concomitant]
     Dosage: 40 MG, UNK
     Route: 048
     Dates: start: 20130314, end: 20131015
  3. MUCODYNE [Concomitant]
     Dosage: 500 MG, TID
     Route: 048
     Dates: start: 20130424, end: 20131015

REACTIONS (1)
  - Hypoxia [Fatal]
